FAERS Safety Report 7892837-1 (Version None)
Quarter: 2011Q4

REPORT INFORMATION
  Report Type: 
  Country: None (occurrence: None)
  Receive Date: 20111104
  Receipt Date: 20111028
  Transmission Date: 20120403
  Serious: Yes (Other)
  Sender: FDA-Public Use
  Company Number: US-SANOFI-AVENTIS-2011SA071376

PATIENT
  Age: 65 Year
  Sex: Male

DRUGS (25)
  1. RILUTEK [Suspect]
     Route: 048
     Dates: start: 20110801
  2. LEVOXYL [Concomitant]
  3. MULTI-VITAMINS [Concomitant]
  4. VITAMIN E [Concomitant]
  5. ESTER-C [Concomitant]
  6. SAW PALMETTO [Concomitant]
  7. FISH OIL [Concomitant]
  8. PROVERA [Concomitant]
  9. ENABLEX [Concomitant]
  10. ALL OTHER THERAPEUTIC PRODUCTS [Concomitant]
  11. MAGNESIUM [Concomitant]
  12. VITAMIN D [Concomitant]
  13. VITAMIN B-12 [Concomitant]
  14. ALPHA LIPOIC ACID [Concomitant]
  15. L-CARNITINE [Concomitant]
  16. DIPHENHYDRAMINE CITRATE/PARACETAMOL [Concomitant]
  17. ALL OTHER THERAPEUTIC PRODUCTS [Concomitant]
  18. ESTRATEST H.S. [Concomitant]
  19. HERBAL PREPARATION [Concomitant]
  20. GENERAL NUTRIENTS [Concomitant]
  21. METAMUCIL-2 [Concomitant]
  22. COQ10 [Concomitant]
  23. CALCIUM [Concomitant]
  24. PAXIL [Concomitant]
  25. ASPIRIN [Concomitant]

REACTIONS (2)
  - FALL [None]
  - PELVIC FRACTURE [None]
